FAERS Safety Report 21371347 (Version 5)
Quarter: 2023Q1

REPORT INFORMATION
  Report Type: Spontaneous
  Country: IT (occurrence: IT)
  Receive Date: 20220923
  Receipt Date: 20230221
  Transmission Date: 20230417
  Serious: Yes (Death, Hospitalization, Other)
  Sender: FDA-Public Use
  Company Number: IT-SA-SAC20220817001207

PATIENT
  Age: 48 Year
  Sex: Female

DRUGS (19)
  1. OXALIPLATIN [Suspect]
     Active Substance: OXALIPLATIN
     Indication: Colorectal cancer
     Dosage: 130 MILLIGRAM
     Route: 042
     Dates: start: 20220613, end: 20220613
  2. FLUOROURACIL [Suspect]
     Active Substance: FLUOROURACIL
     Indication: Product used for unknown indication
     Dosage: 530 MILLIGRAM, TOTAL, 530 MG, 1X
     Route: 042
     Dates: start: 20220613
  3. FLUOROURACIL [Suspect]
     Active Substance: FLUOROURACIL
     Dosage: 3180 MILLIGRAM, TOTAL, 3180 MG, 1X
     Route: 042
     Dates: start: 20220613, end: 20220613
  4. BEVACIZUMAB [Suspect]
     Active Substance: BEVACIZUMAB
     Indication: Colorectal cancer
     Dosage: UNK
     Route: 065
  5. LEUCOVORIN [Suspect]
     Active Substance: LEUCOVORIN
     Indication: Colorectal cancer
     Dosage: 400 MILLIGRAM, QD
     Route: 042
     Dates: start: 20220613, end: 20220613
  6. ETRUMADENANT [Suspect]
     Active Substance: ETRUMADENANT
     Indication: Colorectal cancer
     Dosage: 150 MILLIGRAM, QD
     Route: 048
     Dates: start: 20220613, end: 20220623
  7. REGORAFENIB [Suspect]
     Active Substance: REGORAFENIB
     Indication: Colorectal cancer
     Dosage: UNK
     Route: 065
  8. LEUCOVORIN [Suspect]
     Active Substance: LEUCOVORIN
     Indication: Colorectal cancer
     Dosage: 530 MILLIGRAM, QD
     Route: 058
     Dates: start: 20220613
  9. ZIMBERELIMAB [Suspect]
     Active Substance: ZIMBERELIMAB
     Indication: Colorectal cancer
     Dosage: 480 MILLIGRAM, QD
     Route: 042
     Dates: start: 20220613, end: 20220613
  10. ENOXAPARIN SODIUM [Concomitant]
     Active Substance: ENOXAPARIN SODIUM
     Indication: Thrombosis prophylaxis
     Dosage: UNK
     Route: 065
     Dates: start: 20220102, end: 20220703
  11. PROMAZINA [Concomitant]
     Active Substance: PROMAZINE
     Dosage: UNK
     Route: 065
     Dates: start: 20220614, end: 20220624
  12. PANTOPRAZOLE [Concomitant]
     Active Substance: PANTOPRAZOLE
     Indication: Prophylaxis
     Dosage: UNK
     Route: 065
     Dates: start: 20220606, end: 20220617
  13. OMEPRAZOLE [Concomitant]
     Active Substance: OMEPRAZOLE
     Indication: Prophylaxis
     Dosage: UNK
     Route: 065
     Dates: start: 20210808, end: 20220606
  14. BISOPROLOL [Concomitant]
     Active Substance: BISOPROLOL
     Indication: Sinus tachycardia
     Dosage: UNK
     Route: 065
     Dates: start: 20220606, end: 20220715
  15. KCL RETARD SLOW K [Concomitant]
     Dosage: UNK
     Route: 065
     Dates: start: 20220511, end: 20220627
  16. ACETYLCYSTEINE [Concomitant]
     Active Substance: ACETYLCYSTEINE
     Indication: Detoxification
     Dosage: UNK
     Route: 065
     Dates: start: 20220708
  17. AMINO ACIDS\DEXTROSE\ELECTROLYTES NOS\SOYBEAN OIL [Concomitant]
     Active Substance: AMINO ACIDS\DEXTROSE\ELECTROLYTES NOS\SOYBEAN OIL
     Indication: Prophylaxis
     Dosage: UNK
     Route: 065
     Dates: start: 20220614, end: 20220624
  18. GABAPENTIN [Concomitant]
     Active Substance: GABAPENTIN
     Indication: Neuropathy peripheral
     Dosage: UNK
     Route: 065
     Dates: start: 20220511, end: 20220704
  19. CEFTRIAXONE [Concomitant]
     Active Substance: CEFTRIAXONE
     Dosage: UNK
     Route: 065
     Dates: start: 20220701, end: 20220704

REACTIONS (10)
  - Platelet count decreased [Fatal]
  - Dyspnoea [Fatal]
  - Hyponatraemia [Fatal]
  - Febrile neutropenia [Fatal]
  - Tachycardia [Fatal]
  - Gastric haemorrhage [Fatal]
  - Septic shock [Fatal]
  - Fungal infection [Not Recovered/Not Resolved]
  - Nausea [Not Recovered/Not Resolved]
  - Vomiting [Not Recovered/Not Resolved]

NARRATIVE: CASE EVENT DATE: 20220620
